FAERS Safety Report 8774227 (Version 1)
Quarter: 2012Q4

REPORT INFORMATION
  Report Type: 
  Country: FR (occurrence: FR)
  Receive Date: 20120907
  Receipt Date: 20120907
  Transmission Date: 20130627
  Serious: Yes (Hospitalization)
  Sender: FDA-Public Use
  Company Number: FR-PFIZER INC-2012216922

PATIENT
  Age: 44 Year
  Sex: Female

DRUGS (3)
  1. ZYVOXID [Suspect]
     Dosage: UNK
     Dates: start: 201006, end: 201006
  2. TYGACIL [Suspect]
     Dosage: UNK
     Route: 042
     Dates: start: 201006, end: 201006
  3. OROKEN [Concomitant]
     Dosage: UNK
     Dates: start: 201006, end: 201006

REACTIONS (1)
  - Laryngeal discomfort [Recovered/Resolved]
